FAERS Safety Report 8502931-X (Version None)
Quarter: 2012Q3

REPORT INFORMATION
  Report Type: 
  Country: None (occurrence: None)
  Receive Date: 20120711
  Receipt Date: 20120702
  Transmission Date: 20120928
  Serious: Yes (Other)
  Sender: FDA-Public Use
  Company Number: US-PFIZER INC-2012158959

PATIENT
  Sex: Female

DRUGS (8)
  1. CARBIDOPA + LEVODOPA [Concomitant]
     Indication: PARKINSONISM
     Dosage: UNK
  2. AMANTADINE [Concomitant]
     Indication: PARKINSONISM
     Dosage: UNK
  3. LYRICA [Suspect]
     Indication: NEUROPATHY PERIPHERAL
     Dosage: 75 MG, 3X/DAY
     Route: 048
     Dates: start: 20110601, end: 20110901
  4. LYRICA [Suspect]
     Dosage: 75 MG, 1X/DAY
     Route: 048
     Dates: end: 20110901
  5. LYRICA [Suspect]
     Dosage: UNK
     Route: 048
     Dates: start: 20111101, end: 20120628
  6. GABAPENTIN [Suspect]
     Dosage: UNK
  7. LYRICA [Suspect]
     Dosage: 75 MG, 2X/DAY
     Route: 048
     Dates: start: 20110901
  8. LYRICA [Suspect]
     Dosage: 75 MG, 1X/DAY
     Route: 048
     Dates: start: 20120629

REACTIONS (8)
  - CEREBRAL PALSY [None]
  - PARKINSONISM [None]
  - PAIN [None]
  - NAUSEA [None]
  - WHITE BLOOD CELL COUNT DECREASED [None]
  - RED BLOOD CELL COUNT DECREASED [None]
  - PARAESTHESIA [None]
  - FEELING ABNORMAL [None]
